FAERS Safety Report 17439937 (Version 1)
Quarter: 2020Q1

REPORT INFORMATION
  Report Type: Spontaneous
  Country: US (occurrence: US)
  Receive Date: 20200220
  Receipt Date: 20200220
  Transmission Date: 20200409
  Serious: Yes (Death, Hospitalization)
  Sender: FDA-Public Use
  Company Number: US-MYLANLABS-2020M1018844

PATIENT
  Age: 79 Year
  Sex: Female

DRUGS (1)
  1. METHOTREXATE. [Suspect]
     Active Substance: METHOTREXATE
     Indication: PRODUCT USED FOR UNKNOWN INDICATION
     Dosage: THE WOMAN ACCIDENTALLY INGESTED 6 TABLETS OF METHOTREXATE 2.5MG A DAY FOR 4 DAYS
     Route: 048

REACTIONS (16)
  - Dyspnoea [Not Recovered/Not Resolved]
  - Blister [Not Recovered/Not Resolved]
  - Toxicity to various agents [Fatal]
  - Haemorrhage [Fatal]
  - Gait inability [Not Recovered/Not Resolved]
  - Confusional state [Not Recovered/Not Resolved]
  - Asthenia [Not Recovered/Not Resolved]
  - Inappropriate schedule of product administration [Fatal]
  - Somnolence [Not Recovered/Not Resolved]
  - Skin exfoliation [Not Recovered/Not Resolved]
  - Diarrhoea [Not Recovered/Not Resolved]
  - Generalised oedema [Not Recovered/Not Resolved]
  - Accidental overdose [Fatal]
  - Mouth haemorrhage [Fatal]
  - Vomiting [Not Recovered/Not Resolved]
  - Lethargy [Not Recovered/Not Resolved]
